FAERS Safety Report 5494142-X (Version None)
Quarter: 2007Q4

REPORT INFORMATION
  Report Type: 
  Country: None (occurrence: None)
  Receive Date: 20071022
  Receipt Date: 20071008
  Transmission Date: 20080405
  Serious: Yes (Other)
  Sender: FDA-Public Use
  Company Number: SU-2007-006058

PATIENT
  Age: 66 Year
  Sex: Female
  Weight: 60.782 kg

DRUGS (12)
  1. BENICAR [Suspect]
     Indication: HYPERTENSION
     Dosage: 20 MG (20 MG, 1 IN 1 D), PER ORAL
     Route: 048
     Dates: start: 20070301, end: 20070101
  2. PREMPRO [Suspect]
     Indication: OESTROGEN REPLACEMENT THERAPY
     Dosage: PATIENT TAKES 0.45/1.5MG TABLET, ONCE DAILY (0.45 MG, ONCE A DAY), PER ORAL
     Route: 048
  3. TOPROL-XL [Suspect]
     Indication: HYPERTENSION
     Dosage: 25 MG (25 MG, 1 IN 1 D), PER ORAL
     Route: 048
     Dates: start: 20060701, end: 20070301
  4. DETROL LA [Suspect]
     Indication: INCONTINENCE
     Dosage: 1 MG (2 MG, 1 IN 2 D), ORAL, 2 MG (2 MG, 1 IN 1 D), PER ORAL, 1 MG (2 MG, 1 IN 2 D), PER ORAL
     Route: 048
     Dates: start: 20030101, end: 20070101
  5. DETROL LA [Suspect]
     Indication: INCONTINENCE
     Dosage: 1 MG (2 MG, 1 IN 2 D), ORAL, 2 MG (2 MG, 1 IN 1 D), PER ORAL, 1 MG (2 MG, 1 IN 2 D), PER ORAL
     Route: 048
     Dates: end: 20070101
  6. DETROL LA [Suspect]
     Indication: INCONTINENCE
     Dosage: 1 MG (2 MG, 1 IN 2 D), ORAL, 2 MG (2 MG, 1 IN 1 D), PER ORAL, 1 MG (2 MG, 1 IN 2 D), PER ORAL
     Route: 048
     Dates: start: 20070101, end: 20070801
  7. INDERAL [Suspect]
     Indication: BLOOD PRESSURE
     Dates: start: 20070729
  8. TERAZOSIN (TERAZOSIN) (TERAZOSIN) [Concomitant]
  9. CLONIDINE (CLONIDINE) (CLONIDINE) [Concomitant]
  10. LORAZEPAM [Concomitant]
  11. LEXAPRO (ESCITALOPRAM OXALATE) (ESCITALOPRAM OXALATE) [Concomitant]
  12. ZETIA [Concomitant]

REACTIONS (12)
  - ABASIA [None]
  - ANAPHYLACTIC REACTION [None]
  - APHASIA [None]
  - BLOOD PRESSURE INCREASED [None]
  - CHILLS [None]
  - DRUG INTERACTION [None]
  - FEELING ABNORMAL [None]
  - FLUSHING [None]
  - HEADACHE [None]
  - HEART RATE INCREASED [None]
  - PARAESTHESIA [None]
  - TREMOR [None]
